FAERS Safety Report 10813500 (Version 5)
Quarter: 2015Q3

REPORT INFORMATION
  Report Type: Spontaneous
  Country: US (occurrence: US)
  Receive Date: 20150218
  Receipt Date: 20150917
  Transmission Date: 20151125
  Serious: No
  Sender: FDA-Public Use
  Company Number: US-PFIZER INC-2015053663

PATIENT
  Age: 71 Year
  Sex: Male
  Weight: 82 kg

DRUGS (14)
  1. SUTENT [Suspect]
     Active Substance: SUNITINIB MALATE
     Indication: METASTATIC RENAL CELL CARCINOMA
     Dosage: 50 MG, CYCLIC, 4 WEEKS ON AND 2 WEEKS OFF
     Route: 048
     Dates: start: 20141113
  2. ADVAIR HFA [Concomitant]
     Active Substance: FLUTICASONE PROPIONATE\SALMETEROL XINAFOATE
     Dosage: UNK
  3. SUTENT [Suspect]
     Active Substance: SUNITINIB MALATE
     Dosage: 12.5 MG 4X/DAY CYCLIC, (2 WKS ON, 2 WKS OFF)
     Route: 048
     Dates: start: 20150126
  4. ALLOPURINOL. [Concomitant]
     Active Substance: ALLOPURINOL
     Dosage: UNK
  5. COZAAR [Concomitant]
     Active Substance: LOSARTAN POTASSIUM
     Dosage: UNK
  6. FISH OIL [Concomitant]
     Active Substance: FISH OIL
     Dosage: UNK
  7. DIGOXIN. [Concomitant]
     Active Substance: DIGOXIN
     Dosage: UNK
  8. PRILOSEC [Concomitant]
     Active Substance: OMEPRAZOLE MAGNESIUM
  9. WARFARIN [Concomitant]
     Active Substance: WARFARIN
     Dosage: UNK
  10. LOSARTAN. [Concomitant]
     Active Substance: LOSARTAN
     Dosage: UNK
  11. BACLOFEN. [Concomitant]
     Active Substance: BACLOFEN
     Indication: HICCUPS
     Dosage: 10 MG, 3X/DAY
  12. COUMADIN [Concomitant]
     Active Substance: WARFARIN SODIUM
  13. ALBUTEROL /00139501/ [Concomitant]
     Active Substance: ALBUTEROL
  14. SUTENT [Suspect]
     Active Substance: SUNITINIB MALATE
     Dosage: 50 MG, UNK (50 MG 2 WEEKS ON/2 WEEKS OFF)
     Dates: start: 20141205

REACTIONS (9)
  - Ageusia [Unknown]
  - Fatigue [Unknown]
  - Oral pain [Recovered/Resolved]
  - Weight decreased [Unknown]
  - Dysphagia [Recovered/Resolved]
  - Dry mouth [Unknown]
  - Dysgeusia [Recovering/Resolving]
  - Dry skin [Unknown]
  - Oesophageal disorder [Recovering/Resolving]

NARRATIVE: CASE EVENT DATE: 201412
